FAERS Safety Report 12713426 (Version 1)
Quarter: 2016Q3

REPORT INFORMATION
  Report Type: Report from Study
  Country: US (occurrence: US)
  Receive Date: 20160903
  Receipt Date: 20160903
  Transmission Date: 20161109
  Serious: Yes (Other)
  Sender: FDA-Public Use
  Company Number: US-AMGEN-USASL2016114043

PATIENT
  Age: 60 Year
  Sex: Female

DRUGS (1)
  1. REPATHA [Suspect]
     Active Substance: EVOLOCUMAB
     Indication: BLOOD CHOLESTEROL INCREASED
     Dosage: 140 MG, Q2WK
     Route: 065
     Dates: start: 20160607

REACTIONS (14)
  - Amnesia [Unknown]
  - Musculoskeletal stiffness [Unknown]
  - Restless legs syndrome [Not Recovered/Not Resolved]
  - Blood pressure fluctuation [Unknown]
  - Headache [Not Recovered/Not Resolved]
  - Malaise [Unknown]
  - Muscle spasms [Unknown]
  - Sciatica [Unknown]
  - Muscle tightness [Unknown]
  - Back pain [Not Recovered/Not Resolved]
  - Pain in extremity [Not Recovered/Not Resolved]
  - Pain [Unknown]
  - Discomfort [Unknown]
  - Fear of disease [Unknown]
